FAERS Safety Report 23819911 (Version 1)
Quarter: 2024Q2

REPORT INFORMATION
  Report Type: Spontaneous
  Country: US (occurrence: US)
  Receive Date: 20240506
  Receipt Date: 20240506
  Transmission Date: 20240716
  Serious: No
  Sender: FDA-Public Use
  Company Number: US-LUPIN PHARMACEUTICALS INC.-2024-03566

PATIENT
  Weight: 24.263 kg

DRUGS (1)
  1. DOXYCYCLINE [Suspect]
     Active Substance: DOXYCYCLINE
     Indication: Arthropod bite
     Dosage: 10 MILLILITER, BID
     Route: 048
     Dates: start: 20240421

REACTIONS (3)
  - Product storage error [Unknown]
  - Product use in unapproved indication [Unknown]
  - No adverse event [Unknown]
